FAERS Safety Report 4476346-8 (Version None)
Quarter: 2004Q4

REPORT INFORMATION
  Report Type: 
  Country: None (occurrence: None)
  Receive Date: 20041016
  Receipt Date: 20041011
  Transmission Date: 20050328
  Serious: Yes (Other)
  Sender: FDA-Public Use
  Company Number: DE-MERCK-0410DEU00306

PATIENT
  Age: 48 Year
  Sex: Female

DRUGS (8)
  1. [THERAPY UNSPECIFIED] [Concomitant]
     Indication: HYPERTENSION
     Route: 065
  2. ASPIRIN [Concomitant]
     Route: 065
  3. ATACAND [Concomitant]
     Route: 065
  4. SANDIMMUNE [Concomitant]
     Route: 065
  5. NEPRESOL (DIHYDRALAZINE SULFATE) [Concomitant]
     Route: 065
  6. L-THYROXIN [Concomitant]
     Route: 065
  7. CELLCEPT [Concomitant]
     Route: 065
  8. VIOXX [Suspect]
     Route: 048
     Dates: start: 20030601, end: 20040701

REACTIONS (1)
  - CEREBROVASCULAR ACCIDENT [None]
